FAERS Safety Report 7823858-2 (Version None)
Quarter: 2011Q4

REPORT INFORMATION
  Report Type: 
  Country: None (occurrence: None)
  Receive Date: 20111019
  Receipt Date: 20111012
  Transmission Date: 20120403
  Serious: Yes (Hospitalization)
  Sender: FDA-Public Use
  Company Number: US-AMGEN-USASP2011052764

PATIENT
  Sex: Female

DRUGS (1)
  1. ENBREL [Suspect]
     Indication: RHEUMATOID ARTHRITIS
     Dosage: 50 MG, QWK
     Dates: start: 20080101

REACTIONS (11)
  - PAIN IN EXTREMITY [None]
  - MALAISE [None]
  - ABNORMAL FAECES [None]
  - LARGE INTESTINE ANASTOMOSIS [None]
  - COLOSTOMY [None]
  - CONSTIPATION [None]
  - NAUSEA [None]
  - INCISION SITE INFECTION [None]
  - MUSCULOSKELETAL PAIN [None]
  - COLECTOMY [None]
  - ABDOMINAL DISCOMFORT [None]
